FAERS Safety Report 14239520 (Version 1)
Quarter: 2017Q4

REPORT INFORMATION
  Report Type: Spontaneous
  Country: US (occurrence: US)
  Receive Date: 20171128
  Receipt Date: 20171128
  Transmission Date: 20180321
  Serious: No
  Sender: FDA-Public Use
  Company Number: None

PATIENT
  Age: 50 Year
  Sex: Female
  Weight: 87.75 kg

DRUGS (2)
  1. ARMOUR THYROID [Concomitant]
     Active Substance: THYROID, PORCINE
  2. DULOXETINE HCL [Suspect]
     Active Substance: DULOXETINE HYDROCHLORIDE
     Indication: ARTHRALGIA
     Dosage: ?          QUANTITY:90 CAPSULE(S);?
     Route: 048
     Dates: start: 20071115, end: 20171117

REACTIONS (14)
  - Loss of libido [None]
  - Vertigo [None]
  - Drug dependence [None]
  - Dizziness [None]
  - Paraesthesia [None]
  - Heart rate increased [None]
  - Fatigue [None]
  - Tremor [None]
  - Chest pain [None]
  - Eye disorder [None]
  - Pain [None]
  - Burning sensation [None]
  - Weight increased [None]
  - Diarrhoea [None]

NARRATIVE: CASE EVENT DATE: 20171127
